FAERS Safety Report 4579435-2 (Version None)
Quarter: 2005Q1

REPORT INFORMATION
  Report Type: 
  Country: None (occurrence: None)
  Receive Date: 20050210
  Receipt Date: 20050210
  Transmission Date: 20050727
  Serious: Yes (Death)
  Sender: FDA-Public Use
  Company Number: None

PATIENT
  Sex: Female
  Weight: 78.2 kg

DRUGS (3)
  1. DEXAMETHASONE [Suspect]
     Dosage: 8 MG PO BID, DAYS 0-2, Q 21 DAYS X 3
     Route: 048
     Dates: start: 20041025
  2. DOCETAXEL [Suspect]
     Dosage: 75 MG/M2 IV OVER 60 MIN, DAY 1, Q 21 DAYS X 3
     Route: 042
     Dates: start: 20041025
  3. EXTERNAL BEAM NOS [Suspect]
     Dosage: 6100 CGY
     Dates: end: 20041209

REACTIONS (2)
  - LUNG NEOPLASM MALIGNANT [None]
  - PULMONARY HAEMORRHAGE [None]
